FAERS Safety Report 20790263 (Version 1)
Quarter: 2022Q2

REPORT INFORMATION
  Report Type: Spontaneous
  Country: DE (occurrence: DE)
  Receive Date: 20220505
  Receipt Date: 20220505
  Transmission Date: 20220721
  Serious: Yes (Other)
  Sender: FDA-Public Use
  Company Number: None

PATIENT
  Age: 31 Year
  Sex: Female
  Weight: 67 kg

DRUGS (2)
  1. DULOXETINE HYDROCHLORIDE [Suspect]
     Active Substance: DULOXETINE HYDROCHLORIDE
     Indication: Depression
     Dosage: 30 MG, UNKNOWN
     Route: 048
     Dates: start: 20190301, end: 20191031
  2. LILIA [Concomitant]
     Indication: Luteal phase deficiency
     Dosage: 0,03 MG / 2 MG
     Route: 048
     Dates: start: 20190301

REACTIONS (6)
  - Bipolar disorder [Recovered/Resolved]
  - Compulsive shopping [Recovered/Resolved]
  - Euphoric mood [Recovered/Resolved]
  - Delusion of grandeur [Recovered/Resolved]
  - Agitation [Recovered/Resolved]
  - Mania [Recovered/Resolved]

NARRATIVE: CASE EVENT DATE: 20190701
